FAERS Safety Report 24559242 (Version 2)
Quarter: 2024Q4

REPORT INFORMATION
  Report Type: Spontaneous
  Country: JP (occurrence: JP)
  Receive Date: 20241029
  Receipt Date: 20241106
  Transmission Date: 20250114
  Serious: Yes (Hospitalization, Other)
  Sender: MERCK
  Company Number: JP-MSD-M2024-43542

PATIENT
  Sex: Female

DRUGS (1)
  1. KEYTRUDA [Suspect]
     Active Substance: PEMBROLIZUMAB
     Indication: Triple negative breast cancer
     Dosage: 200 MILLIGRAM, Q3W
     Route: 041
     Dates: start: 202409, end: 2024

REACTIONS (4)
  - Malignant neoplasm progression [Unknown]
  - Thyroiditis [Not Recovered/Not Resolved]
  - Hypothyroidism [Unknown]
  - Tracheal stenosis [Not Recovered/Not Resolved]

NARRATIVE: CASE EVENT DATE: 20241001
